FAERS Safety Report 14120000 (Version 2)
Quarter: 2017Q4

REPORT INFORMATION
  Report Type: Spontaneous
  Country: US (occurrence: US)
  Receive Date: 20171024
  Receipt Date: 20171025
  Transmission Date: 20180321
  Serious: No
  Sender: FDA-Public Use
  Company Number: US-GLAXOSMITHKLINE-US2017GSK160183

PATIENT
  Sex: Male

DRUGS (4)
  1. VENETOCLAX TABLET [Suspect]
     Active Substance: VENETOCLAX
     Indication: PLASMA CELL MYELOMA
     Dosage: 400 MG, QD
     Route: 048
     Dates: start: 201705
  2. VENETOCLAX TABLET [Suspect]
     Active Substance: VENETOCLAX
     Dosage: 400 MG, QD
  3. COREG [Suspect]
     Active Substance: CARVEDILOL
     Indication: PRODUCT USED FOR UNKNOWN INDICATION
  4. VENETOCLAX TABLET [Suspect]
     Active Substance: VENETOCLAX
     Dosage: 800 MG, QD
     Dates: end: 201708

REACTIONS (2)
  - Nausea [Not Recovered/Not Resolved]
  - Therapy change [None]
